FAERS Safety Report 6157490-6 (Version None)
Quarter: 2009Q2

REPORT INFORMATION
  Report Type: 
  Country: None (occurrence: None)
  Receive Date: 20090416
  Receipt Date: 20090407
  Transmission Date: 20091009
  Serious: Yes (Hospitalization, Other)
  Sender: FDA-Public Use
  Company Number: PHHO2009JP03185

PATIENT
  Sex: Male
  Weight: 63 kg

DRUGS (2)
  1. EXELON [Suspect]
     Indication: DEMENTIA ALZHEIMER'S TYPE
     Dosage: 10CM2 ONCE DAILY.
     Route: 062
     Dates: start: 20081129, end: 20090302
  2. SERMION [Concomitant]

REACTIONS (13)
  - ABDOMINAL DISCOMFORT [None]
  - BRAIN SCAN ABNORMAL [None]
  - CONVULSION [None]
  - DIARRHOEA [None]
  - DYSPEPSIA [None]
  - ELECTROENCEPHALOGRAM ABNORMAL [None]
  - EPILEPSY [None]
  - FALL [None]
  - HEAD INJURY [None]
  - LOSS OF CONSCIOUSNESS [None]
  - MALAISE [None]
  - NAUSEA [None]
  - SYNCOPE [None]
